FAERS Safety Report 15885047 (Version 1)
Quarter: 2019Q1

REPORT INFORMATION
  Report Type: Spontaneous
  Country: ZA (occurrence: ZA)
  Receive Date: 20190129
  Receipt Date: 20190129
  Transmission Date: 20190417
  Serious: Yes (Hospitalization)
  Sender: FDA-Public Use
  Company Number: ZA-NOVOPROD-642983

PATIENT
  Age: 50 Year
  Sex: Female

DRUGS (7)
  1. PANTOR [Concomitant]
     Active Substance: PANTOPRAZOLE SODIUM
  2. PRO-BANTHINE [Concomitant]
     Active Substance: PROPANTHELINE BROMIDE
  3. ASACOL [Concomitant]
     Active Substance: MESALAMINE
  4. ESTROFEM [ESTRADIOL] [Suspect]
     Active Substance: ESTRADIOL
     Indication: HORMONE REPLACEMENT THERAPY
     Dosage: 1 MG
     Route: 048
  5. YELATE [Concomitant]
     Active Substance: DULOXETINE HYDROCHLORIDE
  6. ELTROXIN [Concomitant]
     Active Substance: LEVOTHYROXINE
  7. CONCOR [Concomitant]
     Active Substance: BISOPROLOL FUMARATE

REACTIONS (1)
  - Colitis ulcerative [Unknown]
